FAERS Safety Report 12164455 (Version 2)
Quarter: 2017Q1

REPORT INFORMATION
  Report Type: Spontaneous
  Country: US (occurrence: US)
  Receive Date: 20160309
  Receipt Date: 20170209
  Transmission Date: 20170428
  Serious: No
  Sender: FDA-Public Use
  Company Number: US-ROCHE-1660767

PATIENT
  Sex: Female
  Weight: 77.18 kg

DRUGS (1)
  1. XOLAIR [Suspect]
     Active Substance: OMALIZUMAB
     Indication: STATUS ASTHMATICUS
     Dosage: 150MG/1.2 ML
     Route: 058
     Dates: start: 201407

REACTIONS (1)
  - Pregnancy [Unknown]
